FAERS Safety Report 6690355-X (Version None)
Quarter: 2010Q2

REPORT INFORMATION
  Report Type: 
  Country: None (occurrence: None)
  Receive Date: 20100421
  Receipt Date: 20100416
  Transmission Date: 20101027
  Serious: Yes (Other)
  Sender: FDA-Public Use
  Company Number: JP-ASTRAZENECA-2010SE17101

PATIENT
  Age: 75 Year
  Sex: Female

DRUGS (5)
  1. ANAPEINE [Suspect]
     Indication: EPIDURAL ANAESTHESIA
     Dosage: 7.5 MG/ML, DOSE UNKNOWN
     Route: 008
  2. XYLOCAINE [Concomitant]
     Indication: EPIDURAL TEST DOSE
     Route: 008
  3. SEVOFLURANE [Concomitant]
     Dosage: DOSE UNKNOWN
     Route: 055
  4. ROCURONIUM BROMIDE [Concomitant]
     Dosage: DOSE UNKNOWN
     Route: 065
  5. MORPHINE [Concomitant]
     Dosage: DOSE UNKNOWN
     Route: 065

REACTIONS (1)
  - DELAYED RECOVERY FROM ANAESTHESIA [None]
